FAERS Safety Report 21657741 (Version 1)
Quarter: 2022Q4

REPORT INFORMATION
  Report Type: Spontaneous
  Country: US (occurrence: None)
  Receive Date: 20221128
  Receipt Date: 20221128
  Transmission Date: 20230113
  Serious: Yes (Other)
  Sender: FDA-Public Use
  Company Number: None

PATIENT
  Age: 6 Year
  Sex: Female
  Weight: 20.7 kg

DRUGS (2)
  1. CHILDRENS ROBITUSSIN COUGH AND CHEST CONGESTION DM [Suspect]
     Active Substance: DEXTROMETHORPHAN HYDROBROMIDE\GUAIFENESIN
     Indication: Cough
     Dosage: OTHER QUANTITY : 5 ML;?FREQUENCY : EVERY 4 HOURS;?
     Route: 048
     Dates: start: 20221127, end: 20221128
  2. CHILDRENS ROBITUSSIN COUGH AND CHEST CONGESTION DM [Suspect]
     Active Substance: DEXTROMETHORPHAN HYDROBROMIDE\GUAIFENESIN
     Indication: Nasal congestion

REACTIONS (11)
  - Rash [None]
  - Swelling face [None]
  - Skin warm [None]
  - Urticaria [None]
  - Rash macular [None]
  - Nausea [None]
  - Nasopharyngitis [None]
  - Chills [None]
  - Headache [None]
  - Decreased appetite [None]
  - Product label issue [None]

NARRATIVE: CASE EVENT DATE: 20221127
